FAERS Safety Report 13144751 (Version 2)
Quarter: 2017Q1

REPORT INFORMATION
  Report Type: Spontaneous
  Country: FR (occurrence: FR)
  Receive Date: 20170124
  Receipt Date: 20170301
  Transmission Date: 20170428
  Serious: Yes (Life-Threatening, Hospitalization)
  Sender: FDA-Public Use
  Company Number: FR-ACCORD-047564

PATIENT
  Age: 56 Year
  Sex: Male

DRUGS (10)
  1. ZOPHREN [Suspect]
     Active Substance: ONDANSETRON
     Indication: PREMEDICATION
     Route: 042
     Dates: start: 20161115, end: 20161116
  2. ATENOLOL/ATENOLOL HYDROCHLORIDE [Concomitant]
     Route: 048
  3. EMEND [Suspect]
     Active Substance: APREPITANT
     Indication: PREMEDICATION
     Dosage: 125 MG
     Route: 048
     Dates: start: 20161115, end: 20161116
  4. ATORVASTATIN [Concomitant]
     Active Substance: ATORVASTATIN
     Route: 048
  5. PERINDOPRIL/PERINDOPRIL ERBUMINE [Concomitant]
     Route: 048
  6. PLAVIX [Concomitant]
     Active Substance: CLOPIDOGREL BISULFATE
     Dosage: 75 MG
     Route: 048
  7. ALLOPURINOL. [Concomitant]
     Active Substance: ALLOPURINOL
     Route: 048
  8. FLUOROURACIL ACCORD [Suspect]
     Active Substance: FLUOROURACIL
     Indication: NASOPHARYNGEAL CANCER
     Route: 042
     Dates: start: 20161115, end: 20161116
  9. SOLU-MEDROL [Suspect]
     Active Substance: METHYLPREDNISOLONE SODIUM SUCCINATE
     Indication: PREMEDICATION
     Route: 042
     Dates: start: 20161115, end: 20161116
  10. CARBOPLATIN. [Suspect]
     Active Substance: CARBOPLATIN
     Indication: NASOPHARYNGEAL CANCER
     Route: 042
     Dates: start: 20161115, end: 20161116

REACTIONS (9)
  - Coma [Recovering/Resolving]
  - Hyperammonaemia [Recovering/Resolving]
  - Metabolic acidosis [Recovering/Resolving]
  - Vomiting [Recovering/Resolving]
  - Asthenia [Recovering/Resolving]
  - Nausea [Recovering/Resolving]
  - Hyperlactacidaemia [Recovering/Resolving]
  - Limb deformity [Recovering/Resolving]
  - Hyperventilation [Recovering/Resolving]

NARRATIVE: CASE EVENT DATE: 20161017
